FAERS Safety Report 7269712-9 (Version None)
Quarter: 2011Q1

REPORT INFORMATION
  Report Type: 
  Country: None (occurrence: None)
  Receive Date: 20110202
  Receipt Date: 20110131
  Transmission Date: 20110831
  Serious: Yes (Death, Other)
  Sender: FDA-Public Use
  Company Number: MY-PFIZER INC-2011011374

PATIENT
  Age: 61 Year
  Sex: Female

DRUGS (14)
  1. SULPERAZONE [Concomitant]
     Dosage: UNK
     Route: 042
     Dates: start: 20100317
  2. VANCOMYCIN [Concomitant]
     Dosage: UNK
     Route: 042
     Dates: start: 20100401
  3. FUSIDIC ACID [Concomitant]
     Dosage: UNK
     Route: 042
     Dates: start: 20100401
  4. ENOXAPARIN [Concomitant]
     Dosage: UNK
     Route: 042
     Dates: start: 20100311
  5. MEROPENEM [Concomitant]
     Dosage: UNK
     Route: 042
     Dates: start: 20100227
  6. MEROPENEM [Concomitant]
     Dosage: UNK
     Route: 042
     Dates: start: 20100403
  7. DIGOXIN [Concomitant]
     Dosage: UNK
     Route: 048
     Dates: start: 20100227
  8. TYGACIL [Suspect]
     Dosage: 50 MG, 2X/DAY
     Route: 042
     Dates: start: 20100405
  9. METRONIDAZOLE [Concomitant]
     Dosage: UNK
     Route: 042
     Dates: start: 20100306
  10. TYGACIL [Suspect]
     Indication: ACINETOBACTER INFECTION
     Dosage: 100 MG, SINGLE
     Route: 042
     Dates: start: 20100404, end: 20100404
  11. CEFEPIME [Concomitant]
     Dosage: UNK
     Route: 042
     Dates: start: 20100330
  12. FLUCONAZOLE [Concomitant]
     Dosage: UNK
     Route: 042
     Dates: start: 20100407
  13. CIPROFLOXACIN [Concomitant]
     Dosage: UNK
     Route: 042
     Dates: start: 20100311
  14. SULPERAZONE [Concomitant]
     Dosage: UNK
     Route: 042
     Dates: start: 20100403

REACTIONS (4)
  - PLATELET COUNT DECREASED [None]
  - INFECTION [None]
  - MULTI-ORGAN FAILURE [None]
  - WHITE BLOOD CELL COUNT DECREASED [None]
